FAERS Safety Report 8496805-0 (Version None)
Quarter: 2012Q3

REPORT INFORMATION
  Report Type: 
  Country: None (occurrence: None)
  Receive Date: 20120709
  Receipt Date: 20120627
  Transmission Date: 20120928
  Serious: Yes (Hospitalization)
  Sender: FDA-Public Use
  Company Number: US-ACTELION-A-US2007-17109

PATIENT

DRUGS (3)
  1. TRACLEER [Suspect]
     Indication: PULMONARY ARTERIAL HYPERTENSION
     Dosage: 125 MG, BID
     Route: 048
     Dates: start: 20090101
  2. COUMADIN [Suspect]
  3. TRACLEER [Suspect]
     Dosage: UNK
     Route: 048
     Dates: start: 20070621

REACTIONS (14)
  - DIVERTICULITIS [None]
  - DYSPNOEA [None]
  - NAUSEA [None]
  - DIARRHOEA [None]
  - ANAEMIA [None]
  - ANTICOAGULANT THERAPY [None]
  - TRANSFUSION [None]
  - SINUSITIS [None]
  - GASTROINTESTINAL HAEMORRHAGE [None]
  - SINUS HEADACHE [None]
  - EPISTAXIS [None]
  - BRONCHITIS [None]
  - PSORIATIC ARTHROPATHY [None]
  - DIZZINESS [None]
